FAERS Safety Report 24300745 (Version 1)
Quarter: 2024Q3

REPORT INFORMATION
  Report Type: Spontaneous
  Country: GB (occurrence: GB)
  Receive Date: 20240910
  Receipt Date: 20240910
  Transmission Date: 20241016
  Serious: Yes (Other)
  Sender: DEXCEL
  Company Number: None

PATIENT
  Age: 81 Year
  Sex: Female

DRUGS (3)
  1. ApixabanAPIXABAN (Specific Substance SUB10017) [Concomitant]
  2. OMEPRAZOLE [Suspect]
     Active Substance: OMEPRAZOLE
  3. QuinineQUININE (Specific Substance SUB331) [Concomitant]

REACTIONS (1)
  - Hypomagnesaemia [Recovered/Resolved]
